FAERS Safety Report 10042418 (Version 1)
Quarter: 2014Q1

REPORT INFORMATION
  Report Type: Spontaneous
  Country: US (occurrence: US)
  Receive Date: 20140327
  Receipt Date: 20140327
  Transmission Date: 20141002
  Serious: Yes (Hospitalization)
  Sender: FDA-Public Use
  Company Number: US-ABBVIE-14P-163-1214254-00

PATIENT
  Age: 69 Year
  Sex: Male
  Weight: 87.17 kg

DRUGS (9)
  1. HUMIRA [Suspect]
     Indication: COLITIS ULCERATIVE
     Dates: start: 201212, end: 201303
  2. HUMIRA [Suspect]
     Dates: start: 20140203
  3. PANTOPRAZOLE [Concomitant]
     Indication: GASTROOESOPHAGEAL REFLUX DISEASE
  4. TOPROL [Concomitant]
     Indication: HYPERTENSION
  5. PREVASTATIN [Concomitant]
     Indication: BLOOD CHOLESTEROL INCREASED
  6. METANX [Concomitant]
     Indication: VITAMIN B COMPLEX DEFICIENCY
  7. FOLIC ACID [Concomitant]
     Indication: PRODUCT USED FOR UNKNOWN INDICATION
  8. LIALDA [Concomitant]
     Indication: COLITIS ULCERATIVE
  9. PROSCAR [Concomitant]
     Indication: PROSTATITIS

REACTIONS (3)
  - Gallbladder non-functioning [Recovered/Resolved]
  - Nausea [Recovered/Resolved]
  - Rectal haemorrhage [Recovered/Resolved]
